FAERS Safety Report 25423034 (Version 1)
Quarter: 2025Q2

REPORT INFORMATION
  Report Type: Spontaneous
  Country: US (occurrence: US)
  Receive Date: 20250611
  Receipt Date: 20250611
  Transmission Date: 20250716
  Serious: No
  Sender: PFIZER
  Company Number: US-PFIZER INC-202500117196

PATIENT
  Age: 66 Year
  Sex: Female

DRUGS (17)
  1. SULFASALAZINE [Suspect]
     Active Substance: SULFASALAZINE
  2. TOBRAMYCIN [Concomitant]
     Active Substance: TOBRAMYCIN
  3. KEPPRA [Concomitant]
     Active Substance: LEVETIRACETAM
  4. VENTOLIN HFA [Concomitant]
     Active Substance: ALBUTEROL SULFATE
  5. HYDROCODONE BITARTRATE [Concomitant]
     Active Substance: HYDROCODONE BITARTRATE
  6. CETIRIZINE HCL [Concomitant]
     Active Substance: CETIRIZINE HYDROCHLORIDE
  7. POTASSIUM CHLORIDE [Concomitant]
     Active Substance: POTASSIUM CHLORIDE
  8. LEVOTHYROXINE SODIUM [Concomitant]
     Active Substance: LEVOTHYROXINE SODIUM
  9. PREDNISONE [Concomitant]
     Active Substance: PREDNISONE
  10. LASIX [Concomitant]
     Active Substance: FUROSEMIDE
  11. AMLODIPINE BESYLATE [Concomitant]
     Active Substance: AMLODIPINE BESYLATE
  12. LOSARTAN POTASSIUM [Concomitant]
     Active Substance: LOSARTAN POTASSIUM
  13. SOTALOL HYDROCHLORIDE [Concomitant]
     Active Substance: SOTALOL HYDROCHLORIDE
  14. XARELTO [Concomitant]
     Active Substance: RIVAROXABAN
  15. ATORVASTATIN CALCIUM [Concomitant]
     Active Substance: ATORVASTATIN CALCIUM
  16. XANAX [Concomitant]
     Active Substance: ALPRAZOLAM
  17. TRIOGEL [Concomitant]

REACTIONS (1)
  - Drug ineffective [Unknown]
